FAERS Safety Report 7402754-9 (Version None)
Quarter: 2011Q2

REPORT INFORMATION
  Report Type: 
  Country: None (occurrence: None)
  Receive Date: 20110408
  Receipt Date: 20110328
  Transmission Date: 20111010
  Serious: Yes (Other)
  Sender: FDA-Public Use
  Company Number: US-ROCHE-768214

PATIENT

DRUGS (6)
  1. MYCOPHENOLATE MOFETIL [Suspect]
     Route: 065
  2. TACROLIMUS [Suspect]
     Route: 048
  3. METHOTREXATE [Suspect]
     Route: 065
  4. DEXAMETHASONE [Suspect]
     Route: 042
  5. BUSULFAN [Suspect]
     Dosage: THERAPY DURATION: 4 DAYS
     Route: 042
  6. CLOFARABINE [Suspect]
     Dosage: DOSE LEVEL: 20, 30 AND 40 MG/M2. THERAPY DURATION: 5 DAYS
     Route: 042

REACTIONS (13)
  - NAUSEA [None]
  - HYPERTENSION [None]
  - HYPERBILIRUBINAEMIA [None]
  - CONVULSION [None]
  - VOMITING [None]
  - TRANSAMINASES INCREASED [None]
  - MUCOSAL INFLAMMATION [None]
  - VENOOCCLUSIVE LIVER DISEASE [None]
  - ARTHRALGIA [None]
  - PALMAR-PLANTAR ERYTHRODYSAESTHESIA SYNDROME [None]
  - HYPOXIA [None]
  - DIARRHOEA [None]
  - HYPERSENSITIVITY [None]
